FAERS Safety Report 8207098-3 (Version None)
Quarter: 2012Q1

REPORT INFORMATION
  Report Type: 
  Country: None (occurrence: None)
  Receive Date: 20120314
  Receipt Date: 20120306
  Transmission Date: 20120608
  Serious: Yes (Other)
  Sender: FDA-Public Use
  Company Number: US-NOVOPROD-344140

PATIENT
  Age: 65 Year
  Sex: Female
  Weight: 89.796 kg

DRUGS (3)
  1. LEVEMIR [Suspect]
     Dosage: 25 U, QD
     Route: 058
     Dates: start: 20120201
  2. ZANTAC [Concomitant]
  3. LEVEMIR [Suspect]
     Indication: TYPE 2 DIABETES MELLITUS
     Dosage: 25 U, QD
     Route: 058
     Dates: start: 20111101, end: 20120129

REACTIONS (6)
  - DIZZINESS [None]
  - BLOOD GLUCOSE INCREASED [None]
  - HYPERTENSION [None]
  - LACERATION [None]
  - FALL [None]
  - INSOMNIA [None]
